FAERS Safety Report 4716582-6 (Version None)
Quarter: 2005Q3

REPORT INFORMATION
  Report Type: 
  Country: None (occurrence: None)
  Receive Date: 20050713
  Receipt Date: 20050630
  Transmission Date: 20060218
  Serious: Yes (Hospitalization)
  Sender: FDA-Public Use
  Company Number: 2005095914

PATIENT
  Sex: Female

DRUGS (2)
  1. DEPO-MEDROL [Suspect]
     Indication: ILL-DEFINED DISORDER
     Dosage: 40 MG, INTRAVENOUS
     Route: 042
     Dates: start: 20050601
  2. ETORICOXIB (ETORICOXIB) [Suspect]
     Indication: ILL-DEFINED DISORDER

REACTIONS (1)
  - IDIOPATHIC THROMBOCYTOPENIC PURPURA [None]
